FAERS Safety Report 14194957 (Version 1)
Quarter: 2017Q4

REPORT INFORMATION
  Report Type: Report from Study
  Country: US (occurrence: US)
  Receive Date: 20171116
  Receipt Date: 20171116
  Transmission Date: 20180321
  Serious: Yes (Hospitalization)
  Sender: FDA-Public Use
  Company Number: US-EISAI MEDICAL RESEARCH-EC-2017-031981

PATIENT
  Sex: Male
  Weight: 106 kg

DRUGS (2)
  1. LENVIMA [Suspect]
     Active Substance: LENVATINIB
     Indication: RENAL CANCER
     Route: 048
     Dates: start: 201709
  2. AFINITOR [Concomitant]
     Active Substance: EVEROLIMUS

REACTIONS (6)
  - Dehydration [Unknown]
  - Malaise [Unknown]
  - Asthenia [Unknown]
  - Cholecystitis [Unknown]
  - Malnutrition [Unknown]
  - Decreased appetite [Unknown]

NARRATIVE: CASE EVENT DATE: 2017
